FAERS Safety Report 12693515 (Version 1)
Quarter: 2016Q3

REPORT INFORMATION
  Report Type: Spontaneous
  Country: None (occurrence: None)
  Receive Date: 20160826
  Receipt Date: 20160826
  Transmission Date: 20161109
  Serious: No
  Sender: FDA-Public Use
  Company Number: None

PATIENT
  Age: 30 Year
  Sex: Female

DRUGS (8)
  1. MAKENA [Suspect]
     Active Substance: HYDROXYPROGESTERONE CAPROATE
     Indication: PREMATURE LABOUR
     Dosage: 1 CC
     Route: 030
     Dates: start: 20160531
  2. NIFEDIPINE. [Concomitant]
     Active Substance: NIFEDIPINE
  3. LORATADINE. [Concomitant]
     Active Substance: LORATADINE
  4. CLOTRIMAZOLE CRE [Concomitant]
  5. HYDROXYZ [Concomitant]
     Active Substance: HYDROXYZINE HYDROCHLORIDE
  6. TYLENOL [Suspect]
     Active Substance: ACETAMINOPHEN
  7. VITAFOL [Concomitant]
  8. PRENATAL [Concomitant]
     Active Substance: VITAMINS

REACTIONS (2)
  - Nausea [None]
  - Uterine contractions abnormal [None]

NARRATIVE: CASE EVENT DATE: 201608
